FAERS Safety Report 6284469-6 (Version None)
Quarter: 2009Q3

REPORT INFORMATION
  Report Type: 
  Country: None (occurrence: None)
  Receive Date: 20090722
  Receipt Date: 20090709
  Transmission Date: 20100115
  Serious: Yes (Disabling)
  Sender: FDA-Public Use
  Company Number: ESP-SPN-2009001

PATIENT
  Sex: Female

DRUGS (5)
  1. CYSTADANE [Suspect]
     Indication: HOMOCYSTINURIA
     Dosage: 3G EVERY DAY; 6 G EVERY DAY; ORAL
     Route: 048
     Dates: start: 20090622, end: 20090101
  2. CYSTADANE [Suspect]
     Indication: HOMOCYSTINURIA
     Dosage: 3G EVERY DAY; 6 G EVERY DAY; ORAL
     Route: 048
     Dates: start: 20090101, end: 20090207
  3. FOLIC ACID [Concomitant]
  4. PYRIDOXINE [Concomitant]
  5. CYSTINE [Concomitant]

REACTIONS (2)
  - DECREASED APPETITE [None]
  - HEADACHE [None]
